FAERS Safety Report 15679068 (Version 9)
Quarter: 2020Q2

REPORT INFORMATION
  Report Type: Spontaneous
  Country: TW (occurrence: TW)
  Receive Date: 20181203
  Receipt Date: 20200603
  Transmission Date: 20200713
  Serious: Yes (Hospitalization, Other)
  Sender: FDA-Public Use
  Company Number: TW-AMGEN-TWNSP2018171112

PATIENT
  Age: 75 Year
  Sex: Female

DRUGS (9)
  1. PREDNISOLONE. [Concomitant]
     Active Substance: PREDNISOLONE
     Dosage: 1 DF, BID
  2. ARHEUMA [Concomitant]
     Dosage: 20 MG, DAILY
  3. CELEBREX [Concomitant]
     Active Substance: CELECOXIB
     Dosage: 200 MILLIGRAM, QD
  4. ENBREL [Suspect]
     Active Substance: ETANERCEPT
     Dosage: UNK
     Route: 042
     Dates: end: 20190115
  5. ENBREL [Suspect]
     Active Substance: ETANERCEPT
     Indication: RHEUMATOID ARTHRITIS
     Dosage: 25 MG, 2X/WEEK
     Route: 042
     Dates: start: 201505
  6. LIVALO [Concomitant]
     Active Substance: PITAVASTATIN CALCIUM
     Dosage: 1 DF, DAILY
  7. ENBREL [Suspect]
     Active Substance: ETANERCEPT
     Dosage: 25 MG, Q4DAY
     Route: 042
     Dates: end: 2018
  8. ENBREL [Suspect]
     Active Substance: ETANERCEPT
     Dosage: UNK
     Route: 042
  9. SALAZINE [Concomitant]
     Active Substance: SULFASALAZINE
     Dosage: 2 MG, DAILY

REACTIONS (10)
  - Feeling hot [Unknown]
  - Anastomotic ulcer [Recovering/Resolving]
  - Off label use [Unknown]
  - Peripheral swelling [Recovered/Resolved]
  - Disease recurrence [Recovering/Resolving]
  - Infection [Unknown]
  - Product use issue [Unknown]
  - Cellulitis [Recovering/Resolving]
  - Erythema [Recovered/Resolved]
  - Duodenal ulcer [Recovering/Resolving]

NARRATIVE: CASE EVENT DATE: 201505
